FAERS Safety Report 9785441 (Version 1)
Quarter: 2013Q4

REPORT INFORMATION
  Report Type: Spontaneous
  Country: US (occurrence: US)
  Receive Date: 20131227
  Receipt Date: 20131227
  Transmission Date: 20140711
  Serious: No
  Sender: FDA-Public Use
  Company Number: US-BAYER-2013-155585

PATIENT
  Age: 33 Year
  Sex: Female

DRUGS (3)
  1. GADAVIST [Suspect]
     Indication: NUCLEAR MAGNETIC RESONANCE IMAGING
     Dosage: 10 ML, ONCE
     Route: 042
     Dates: start: 20131218, end: 20131218
  2. GADAVIST [Suspect]
     Indication: SPINAL COLUMN INJURY
  3. SALINE [Concomitant]

REACTIONS (1)
  - Vomiting [Recovered/Resolved]
